FAERS Safety Report 6312142-4 (Version None)
Quarter: 2009Q3

REPORT INFORMATION
  Report Type: 
  Country: None (occurrence: None)
  Receive Date: 20090813
  Receipt Date: 20090813
  Transmission Date: 20100115
  Serious: No
  Sender: FDA-Public Use
  Company Number: None

PATIENT
  Age: 37 Year
  Sex: Female
  Weight: 57.6068 kg

DRUGS (1)
  1. CYMBALTA [Suspect]
     Indication: DEPRESSION
     Dosage: 60MG -TAKING LESS THAN 30MG- 1X A DAY UNK
     Route: 065
     Dates: start: 20090627, end: 20090812

REACTIONS (12)
  - ABDOMINAL DISCOMFORT [None]
  - ASTHENIA [None]
  - COLD SWEAT [None]
  - DECREASED APPETITE [None]
  - DISORIENTATION [None]
  - DIZZINESS [None]
  - DRUG WITHDRAWAL SYNDROME [None]
  - NAUSEA [None]
  - PAIN [None]
  - SUICIDAL IDEATION [None]
  - THINKING ABNORMAL [None]
  - TREMOR [None]
